FAERS Safety Report 7100350-4 (Version None)
Quarter: 2010Q4

REPORT INFORMATION
  Report Type: 
  Country: None (occurrence: None)
  Receive Date: 20101112
  Receipt Date: 20101110
  Transmission Date: 20110411
  Serious: Yes (Hospitalization)
  Sender: FDA-Public Use
  Company Number: ES-MERCK-1011ESP00006

PATIENT
  Age: 85 Year
  Sex: Female

DRUGS (9)
  1. ZOCOR [Suspect]
     Indication: HYPERCHOLESTEROLAEMIA
     Route: 048
     Dates: start: 20100101
  2. RISEDRONATE SODIUM [Concomitant]
     Route: 065
  3. LEFLUNOMIDE [Concomitant]
     Indication: RHEUMATOID ARTHRITIS
     Route: 048
  4. ALLOPURINOL [Suspect]
     Indication: HYPERURICAEMIA
     Route: 048
     Dates: start: 20100805, end: 20100807
  5. ESOMEPRAZOLE MAGNESIUM [Concomitant]
     Route: 065
  6. HYDROCHLOROTHIAZIDE AND OLMESARTAN MEDOXOMIL [Suspect]
     Indication: HYPERTENSION
     Route: 048
     Dates: start: 20100101, end: 20100807
  7. LORAZEPAM [Concomitant]
     Route: 065
  8. FESOTERODINE FUMARATE [Concomitant]
     Route: 048
  9. ASPIRIN [Concomitant]
     Route: 048

REACTIONS (2)
  - HYPONATRAEMIA [None]
  - RHABDOMYOLYSIS [None]
